FAERS Safety Report 7429755-9 (Version None)
Quarter: 2011Q2

REPORT INFORMATION
  Report Type: 
  Country: None (occurrence: None)
  Receive Date: 20110421
  Receipt Date: 20110411
  Transmission Date: 20111010
  Serious: Yes (Other)
  Sender: FDA-Public Use
  Company Number: PHHY2011US32088

PATIENT
  Sex: Female

DRUGS (10)
  1. METOPROLOL [Concomitant]
  2. VITAMINS B3 [Concomitant]
  3. OSTEO BI-FLEX [Concomitant]
  4. RECLAST [Suspect]
     Dosage: 5 MG, UNK
     Route: 042
     Dates: start: 20090501
  5. RECLAST [Suspect]
     Dosage: 5 MG, UNK
     Route: 042
     Dates: start: 20100501
  6. GLUCOSAMINE [Concomitant]
  7. COQ10 [Concomitant]
  8. SUCC.ER [Concomitant]
  9. NEXIUM [Concomitant]
  10. AMLODIPINE [Concomitant]

REACTIONS (4)
  - OSTEOPENIA [None]
  - RENAL DISORDER [None]
  - BLOOD CALCIUM INCREASED [None]
  - BACK PAIN [None]
